FAERS Safety Report 6868203-4 (Version None)
Quarter: 2010Q3

REPORT INFORMATION
  Report Type: 
  Country: None (occurrence: None)
  Receive Date: 20100722
  Receipt Date: 20080522
  Transmission Date: 20110219
  Serious: No
  Sender: FDA-Public Use
  Company Number: US-PFIZER INC-2008044583

PATIENT
  Sex: Male
  Weight: 64.41 kg

DRUGS (3)
  1. CHANTIX [Suspect]
     Indication: SMOKING CESSATION THERAPY
     Dates: start: 20080521
  2. NEURONTIN [Suspect]
     Indication: PAIN
     Dates: start: 20080519
  3. FLEXERIL [Suspect]
     Dates: start: 20080519

REACTIONS (3)
  - FATIGUE [None]
  - HYPERSOMNIA [None]
  - SEDATION [None]
